FAERS Safety Report 17312978 (Version 1)
Quarter: 2020Q1

REPORT INFORMATION
  Report Type: Spontaneous
  Country: JP (occurrence: JP)
  Receive Date: 20200124
  Receipt Date: 20200124
  Transmission Date: 20200409
  Serious: Yes (Other)
  Sender: FDA-Public Use
  Company Number: JP-MACLEODS PHARMACEUTICALS US LTD-MAC2020024861

PATIENT

DRUGS (1)
  1. CLOBETASOL 0.05 % W/W [Suspect]
     Active Substance: CLOBETASOL
     Indication: NEURODERMATITIS
     Dosage: UNK, OINTMENT
     Route: 061

REACTIONS (2)
  - Neurodermatitis [Recovered/Resolved]
  - Sweat gland disorder [Recovered/Resolved]
